FAERS Safety Report 24358382 (Version 3)
Quarter: 2024Q3

REPORT INFORMATION
  Report Type: Spontaneous
  Country: US (occurrence: US)
  Receive Date: 20240924
  Receipt Date: 20240927
  Transmission Date: 20241017
  Serious: Yes (Hospitalization, Other)
  Sender: PFIZER
  Company Number: US-PFIZER INC-202400260907

PATIENT
  Age: 65 Year
  Sex: Female

DRUGS (4)
  1. TUKYSA [Suspect]
     Active Substance: TUCATINIB
     Dosage: 50 MG TAKE TWO TABLETS BY MOUTH TWICE A DAY
     Route: 048
  2. TUKYSA [Suspect]
     Active Substance: TUCATINIB
     Dosage: 1 TABLET OF 150MG AND 2 TABLETS OF 50MG 2X/DAY
     Route: 048
     Dates: start: 202205
  3. TRAZIMERA [Suspect]
     Active Substance: TRASTUZUMAB-QYYP
     Dosage: UNK
  4. HERCEPTIN [Concomitant]
     Active Substance: TRASTUZUMAB
     Dosage: UNK

REACTIONS (14)
  - Urinary tract infection [Unknown]
  - Anaemia [Unknown]
  - Hepatic cirrhosis [Unknown]
  - Portal hypertension [Unknown]
  - Headache [Not Recovered/Not Resolved]
  - Musculoskeletal stiffness [Not Recovered/Not Resolved]
  - Oedema peripheral [Unknown]
  - Pyrexia [Not Recovered/Not Resolved]
  - Myelosuppression [Unknown]
  - Deep vein thrombosis [Unknown]
  - Brain operation [Recovered/Resolved]
  - Neoplasm progression [Unknown]
  - Off label use [Unknown]
  - Off label use [Unknown]

NARRATIVE: CASE EVENT DATE: 20240101
